FAERS Safety Report 4444131-9 (Version None)
Quarter: 2004Q3

REPORT INFORMATION
  Report Type: 
  Country: None (occurrence: None)
  Receive Date: 20040729
  Receipt Date: 20031006
  Transmission Date: 20050211
  Serious: Yes (Death)
  Sender: FDA-Public Use
  Company Number: USA-2003-0009904

PATIENT
  Age: 25 Year
  Sex: Female
  Weight: 56.7 kg

DRUGS (5)
  1. MORPHINE SULFATE [Suspect]
  2. METHADONE HCL [Suspect]
  3. ALPRAZOLAM [Suspect]
  4. COCAINE (COCAINE) [Suspect]
  5. PROCAINAMIDE [Suspect]

REACTIONS (2)
  - ACCIDENTAL OVERDOSE [None]
  - MULTIPLE DRUG OVERDOSE [None]
